APPROVED DRUG PRODUCT: INVOKAMET
Active Ingredient: CANAGLIFLOZIN; METFORMIN HYDROCHLORIDE
Strength: 50MG;500MG
Dosage Form/Route: TABLET;ORAL
Application: N204353 | Product #001
Applicant: JANSSEN PHARMACEUTICALS INC
Approved: Aug 8, 2014 | RLD: Yes | RS: No | Type: RX

PATENTS:
Patent 7943582 | Expires: Feb 26, 2029
Patent 8513202 | Expires: Dec 3, 2027
Patent 7943582 | Expires: Feb 26, 2029
Patent 7943582 | Expires: Feb 26, 2029
Patent 8513202 | Expires: Dec 3, 2027
Patent 8513202 | Expires: Dec 3, 2027
Patent 7943788 | Expires: Jul 14, 2027
Patent 11576894 | Expires: Jul 6, 2030
Patent 7943582*PED | Expires: Aug 26, 2029
Patent 8513202*PED | Expires: Jun 3, 2028
Patent 7943788*PED | Expires: Jan 14, 2028

EXCLUSIVITY:
Code: NPP | Date: Dec 18, 2027
Code: PED | Date: Jun 18, 2028